FAERS Safety Report 8406893-5 (Version None)
Quarter: 2012Q2

REPORT INFORMATION
  Report Type: 
  Country: None (occurrence: None)
  Receive Date: 20120604
  Receipt Date: 20120529
  Transmission Date: 20120825
  Serious: Yes (Life-Threatening, Hospitalization)
  Sender: FDA-Public Use
  Company Number: FR-ASTRAZENECA-2012SE31487

PATIENT
  Age: 22152 Day
  Sex: Female

DRUGS (4)
  1. ATARAX [Suspect]
     Route: 048
     Dates: start: 20120121
  2. LOXAPINE HCL [Suspect]
     Route: 048
     Dates: start: 20120121
  3. ACETAMINOPHEN [Suspect]
     Route: 048
     Dates: start: 20120121, end: 20120219
  4. QUETIAPINE FUMARATE [Suspect]
     Indication: DEPRESSION
     Route: 048
     Dates: start: 20120125

REACTIONS (2)
  - VENOUS THROMBOSIS [None]
  - PULMONARY EMBOLISM [None]
